FAERS Safety Report 15117889 (Version 1)
Quarter: 2018Q3

REPORT INFORMATION
  Report Type: Spontaneous
  Country: US (occurrence: US)
  Receive Date: 20180707
  Receipt Date: 20180707
  Transmission Date: 20181010
  Serious: Yes (Death)
  Sender: FDA-Public Use
  Company Number: US-JNJFOC-20180633211

PATIENT
  Sex: Male
  Weight: 63.5 kg

DRUGS (1)
  1. ZYTIGA [Suspect]
     Active Substance: ABIRATERONE ACETATE
     Indication: PROSTATE CANCER
     Dosage: UNDER TREATMENT FROM 5 TO 6 YEARS
     Route: 048

REACTIONS (1)
  - Prostate cancer [Fatal]
